FAERS Safety Report 6767843-0 (Version None)
Quarter: 2010Q2

REPORT INFORMATION
  Report Type: 
  Country: None (occurrence: None)
  Receive Date: 20100614
  Receipt Date: 20100607
  Transmission Date: 20101027
  Serious: Yes (Other)
  Sender: FDA-Public Use
  Company Number: PHHO2010AU04065

PATIENT
  Sex: Male

DRUGS (2)
  1. STI571/CGP57148B T35717+TAB [Suspect]
     Indication: CHRONIC MYELOID LEUKAEMIA
     Dosage: 600 MG
     Route: 048
     Dates: start: 20091001
  2. STI571/CGP57148B T35717+TAB [Suspect]
     Dosage: 800MG
     Route: 048
     Dates: start: 20091201

REACTIONS (4)
  - BONE MARROW DISORDER [None]
  - CHROMATURIA [None]
  - PERIORBITAL OEDEMA [None]
  - RASH [None]
